FAERS Safety Report 14371309 (Version 2)
Quarter: 2018Q1

REPORT INFORMATION
  Report Type: Spontaneous
  Country: DE (occurrence: DE)
  Receive Date: 20180110
  Receipt Date: 20180112
  Transmission Date: 20180509
  Serious: Yes (Life-Threatening, Hospitalization)
  Sender: FDA-Public Use
  Company Number: DE-FERRINGPH-2017FE06450

PATIENT

DRUGS (1)
  1. PICOPREP [Suspect]
     Active Substance: ANHYDROUS CITRIC ACID\MAGNESIUM OXIDE\SODIUM PICOSULFATE
     Indication: BOWEL PREPARATION
     Dosage: 2 SACHETS, 1. SACHET AT 11AM, 2. SACHET AT 7 PM
     Route: 048
     Dates: start: 20140106, end: 20140106

REACTIONS (7)
  - Urinary tract infection bacterial [Unknown]
  - Hyponatraemia [Recovered/Resolved with Sequelae]
  - Treatment noncompliance [Unknown]
  - Brain oedema [Recovered/Resolved with Sequelae]
  - Rhabdomyolysis [Unknown]
  - Vulvovaginal mycotic infection [Unknown]
  - Inappropriate schedule of drug administration [Unknown]

NARRATIVE: CASE EVENT DATE: 20140106
